FAERS Safety Report 8175617-1 (Version None)
Quarter: 2012Q1

REPORT INFORMATION
  Report Type: 
  Country: None (occurrence: None)
  Receive Date: 20120301
  Receipt Date: 20120221
  Transmission Date: 20120608
  Serious: No
  Sender: FDA-Public Use
  Company Number: US-BIOGENIDEC-2012BI006477

PATIENT
  Sex: Female

DRUGS (1)
  1. TYSABRI [Suspect]
     Indication: MULTIPLE SCLEROSIS
     Route: 042
     Dates: start: 20070806

REACTIONS (8)
  - DYSKINESIA [None]
  - ASTHMA [None]
  - SPEECH DISORDER [None]
  - HYPOAESTHESIA [None]
  - ASTHENIA [None]
  - INCONTINENCE [None]
  - SLOW SPEECH [None]
  - ATOPY [None]
